FAERS Safety Report 8232120-8 (Version None)
Quarter: 2012Q1

REPORT INFORMATION
  Report Type: 
  Country: None (occurrence: None)
  Receive Date: 20120323
  Receipt Date: 20120319
  Transmission Date: 20120608
  Serious: Yes (Other)
  Sender: FDA-Public Use
  Company Number: GB-PFIZER INC-2012070547

PATIENT
  Age: 75 Year
  Sex: Male
  Weight: 71 kg

DRUGS (2)
  1. CODEINE SULFATE [Concomitant]
     Dosage: TAKEN AS REQUIRED
  2. PREGABALIN [Suspect]
     Indication: PHANTOM PAIN
     Dosage: 50 MG, 2X/DAY
     Route: 048
     Dates: start: 20111101, end: 20111201

REACTIONS (2)
  - COGNITIVE DISORDER [None]
  - MEMORY IMPAIRMENT [None]
